FAERS Safety Report 24561715 (Version 1)
Quarter: 2024Q4

REPORT INFORMATION
  Report Type: Spontaneous
  Country: US (occurrence: None)
  Receive Date: 20241029
  Receipt Date: 20241029
  Transmission Date: 20250114
  Serious: Yes (Hospitalization)
  Sender: Public
  Company Number: None

PATIENT
  Age: 86 Year
  Sex: Female
  Weight: 66.15 kg

DRUGS (9)
  1. EYLEA HD [Suspect]
     Active Substance: AFLIBERCEPT
     Indication: Neovascular age-related macular degeneration
     Dosage: OTHER STRENGTH : UNKNOWN;?OTHER QUANTITY : 1 INJECTION(S);?OTHER FREQUENCY : EVERY 4 - 5 WEEKS;?
     Route: 047
  2. METOPROLOL [Concomitant]
     Active Substance: METOPROLOL
  3. RYTHMOL [Concomitant]
     Active Substance: PROPAFENONE HYDROCHLORIDE
  4. ZETIA [Concomitant]
     Active Substance: EZETIMIBE
  5. TRILIPIX [Concomitant]
     Active Substance: FENOFIBRIC ACID
  6. MINERALS\VITAMINS [Concomitant]
     Active Substance: MINERALS\VITAMINS
  7. ASPIRIN [Concomitant]
     Active Substance: ASPIRIN
  8. VITAMIN C [Concomitant]
     Active Substance: ASCORBIC ACID
  9. VITAMINS [Concomitant]
     Active Substance: VITAMINS

REACTIONS (2)
  - Eye infection [None]
  - Retinal detachment [None]

NARRATIVE: CASE EVENT DATE: 20240502
